FAERS Safety Report 20173330 (Version 1)
Quarter: 2021Q4

REPORT INFORMATION
  Report Type: Spontaneous
  Country: NL (occurrence: NL)
  Receive Date: 20211211
  Receipt Date: 20211211
  Transmission Date: 20220303
  Serious: Yes (Life-Threatening, Hospitalization, Other)
  Sender: FDA-Public Use
  Company Number: None

PATIENT
  Age: 79 Year
  Sex: Female
  Weight: 94.4 kg

DRUGS (12)
  1. LISINOPRIL [Suspect]
     Active Substance: LISINOPRIL
     Indication: Hypertension
     Dosage: 1 DF, BRAND NAME NOT SPECIFIED, 1DD
     Dates: start: 201910, end: 20211108
  2. OXYCODONE [Concomitant]
     Active Substance: OXYCODONE
     Dosage: 5 MG, THERAPY START DATE AND END DATE: ASKU
  3. BECLOMETASON/FORMOTEROL [Concomitant]
     Dosage: AEROSOL, 100/6UG/DO / FOSTER AEROSOL 100/6MCG/DOSE AEROSOL 120DO, THERAPY START DATE AND END DATE: A
  4. CELLCEPT [Concomitant]
     Active Substance: MYCOPHENOLATE MOFETIL
     Dosage: 500 MG, THERAPY START DATE AND END DATE: ASKU
  5. RIVAROXABAN [Concomitant]
     Active Substance: RIVAROXABAN
     Dosage: 20 MG (MILLIGRAM), THERAPY START DATE AND END DATE: ASKU
  6. PANTOPRAZOLE SODIUM [Concomitant]
     Active Substance: PANTOPRAZOLE SODIUM
     Dosage: 40 MG (MILLIGRAM), THERAPY START DATE AND END DATE: ASKU
  7. CALCIUMCARB/COLECALC [Concomitant]
     Dosage: 1.25G (GRAMS)/800 UNITS, THERAPY START DATE AND END DATE: ASKU
  8. SIMVASTATIN [Concomitant]
     Active Substance: SIMVASTATIN
     Dosage: 40 MG (MILLIGRAM)
  9. PREDNISOLONE [Concomitant]
     Active Substance: PREDNISOLONE
     Dosage: 5 MG , THERAPY START DATE AND END DATE: ASKU
  10. METOCLOPRAMIDE [Concomitant]
     Active Substance: METOCLOPRAMIDE
     Dosage: 10 MG, THERAPY START DATE AND END DATE: ASKU
  11. ACETAMINOPHEN [Concomitant]
     Active Substance: ACETAMINOPHEN
     Dosage: 500 MG, THERAPY START DATE AND END DATE: ASKU
  12. POLYETHYLENE GLYCOLS [Concomitant]
     Active Substance: POLYETHYLENE GLYCOLS
     Dosage: ,POWDER FOR BEVERAGE IN SACHET, THERAPY START DATE AND END DATE: ASKU

REACTIONS (2)
  - Hyperkalaemia [Recovering/Resolving]
  - Acute kidney injury [Unknown]

NARRATIVE: CASE EVENT DATE: 20211108
